FAERS Safety Report 6413024-X (Version None)
Quarter: 2009Q4

REPORT INFORMATION
  Report Type: 
  Country: None (occurrence: None)
  Receive Date: 20091023
  Receipt Date: 20091023
  Transmission Date: 20100525
  Serious: Yes (Hospitalization)
  Sender: FDA-Public Use
  Company Number: None

PATIENT
  Sex: Female
  Weight: 51.27 kg

DRUGS (9)
  1. CISPLATIN [Suspect]
     Dosage: 268 MG
     Dates: end: 20091013
  2. TAXOL [Suspect]
     Dosage: 537 MG
     Dates: end: 20091013
  3. DIOVAN [Concomitant]
  4. FENTANYL TRANSDERMAL SYSTEM [Concomitant]
  5. MAGIC SWIZZLE [Concomitant]
  6. OXYCODONE [Concomitant]
  7. LORAZEPAM [Concomitant]
  8. METAPROLOL [Concomitant]
  9. OMEPRAZOLE [Concomitant]

REACTIONS (9)
  - ASTHENIA [None]
  - BLOOD MAGNESIUM DECREASED [None]
  - BLOOD POTASSIUM DECREASED [None]
  - CHOLELITHIASIS [None]
  - FALL [None]
  - ORTHOSTATIC HYPOTENSION [None]
  - PANCYTOPENIA [None]
  - PRESYNCOPE [None]
  - RADIATION OESOPHAGITIS [None]
